FAERS Safety Report 6232858-8 (Version None)
Quarter: 2009Q2

REPORT INFORMATION
  Report Type: 
  Country: None (occurrence: None)
  Receive Date: 20090617
  Receipt Date: 20090105
  Transmission Date: 20091009
  Serious: No
  Sender: FDA-Public Use
  Company Number: US-ASTRAZENECA-2008UW26941

PATIENT
  Age: 40 Year
  Sex: Female
  Weight: 109.3 kg

DRUGS (4)
  1. FASLODEX [Suspect]
     Indication: BREAST CANCER METASTATIC
     Route: 030
     Dates: start: 20080519
  2. NAVALENE [Concomitant]
     Indication: BREAST CANCER FEMALE
     Dosage: WEEKLY
     Route: 042
  3. AVASTIN [Concomitant]
     Indication: BREAST CANCER FEMALE
     Dosage: WEEKLY
     Route: 042
  4. TAXOL [Concomitant]
     Indication: BREAST CANCER FEMALE
     Dosage: DAILY
     Route: 042
     Dates: start: 20080507, end: 20080804

REACTIONS (1)
  - APHONIA [None]
